FAERS Safety Report 25382609 (Version 2)
Quarter: 2025Q2

REPORT INFORMATION
  Report Type: Report from Study
  Country: US (occurrence: US)
  Receive Date: 20250601
  Receipt Date: 20250624
  Transmission Date: 20250717
  Serious: No
  Sender: ABBVIE
  Company Number: US-ABBVIE-6305106

PATIENT
  Age: 58 Year
  Sex: Female
  Weight: 99.79 kg

DRUGS (3)
  1. RINVOQ [Suspect]
     Active Substance: UPADACITINIB
     Indication: Dermatitis atopic
     Dosage: STRENGTH: 15 MILLIGRAM
     Route: 048
     Dates: start: 20250303
  2. RINVOQ [Suspect]
     Active Substance: UPADACITINIB
     Indication: Dermatitis atopic
     Route: 048
  3. LUMAKRAS [Concomitant]
     Active Substance: SOTORASIB
     Indication: Lung carcinoma cell type unspecified stage IV

REACTIONS (3)
  - Skin discolouration [Unknown]
  - Erythema [Recovering/Resolving]
  - Pain [Unknown]

NARRATIVE: CASE EVENT DATE: 20250301
